FAERS Safety Report 9507721 (Version 1)
Quarter: 2013Q1

REPORT INFORMATION
  Report Type: Spontaneous
  Country: US (occurrence: None)
  Receive Date: 20130305
  Receipt Date: 20130305
  Transmission Date: 20140127
  Serious: Yes (Hospitalization)
  Sender: FDA-Public Use
  Company Number: 163-21880-11111097

PATIENT
  Age: 57 Year
  Sex: Female
  Weight: 90.71 kg

DRUGS (12)
  1. REVLIMID (LENALIDOMIDE) (CAPSULES) [Suspect]
     Indication: MYELOFIBROSIS
     Dosage: 10 MG, 21 IN 21 D, PO
     Route: 048
     Dates: start: 201108, end: 2011
  2. ASA (ACETYLSALICYLIC ACID) (UNKNOWN) [Concomitant]
  3. CYMBALTA (DULOXETINE HYDROCHLORIDE) (UNKNOWN) [Concomitant]
  4. LISINOPRIL (LISINOPRIL) (UNKNOWN) [Concomitant]
  5. MAGNESIUM (MAGNESIUM) (UNKNOWN) [Concomitant]
  6. PERCOCET (OXYCOCET) (TABLETS) [Concomitant]
  7. POTASSIUM (POTASSIUM) (UNKNOWN) [Concomitant]
  8. THIAMINE (THIAMINE) (CAPSULES) [Concomitant]
  9. XANAX (ALPRAZOLAM) (TABLETS) [Concomitant]
  10. PRILOSEC (OMEPRAZOLE) (CAPSULES) [Concomitant]
  11. CEFEPIME (CEFEPIME) (UNKNOWN) [Concomitant]
  12. PRBC^S (UNKNOWN) [Concomitant]

REACTIONS (7)
  - White blood cell count decreased [None]
  - Asthenia [None]
  - Pyrexia [None]
  - Anaemia [None]
  - Diarrhoea [None]
  - Abdominal pain upper [None]
  - Nausea [None]
